FAERS Safety Report 22164270 (Version 2)
Quarter: 2023Q2

REPORT INFORMATION
  Report Type: Spontaneous
  Country: MX (occurrence: MX)
  Receive Date: 20230403
  Receipt Date: 20230405
  Transmission Date: 20230722
  Serious: Yes (Death, Life-Threatening, Hospitalization, Other)
  Sender: FDA-Public Use
  Company Number: None

PATIENT
  Age: 45 Year
  Sex: Male

DRUGS (23)
  1. DOXORUBICIN [Suspect]
     Active Substance: DOXORUBICIN
     Indication: Diffuse large B-cell lymphoma
     Dosage: RECEIVED R-CHOP THERAPY, CYCLICAL
     Route: 065
  2. PREDNISOLONE [Suspect]
     Active Substance: PREDNISOLONE
     Indication: Diffuse large B-cell lymphoma
     Dosage: RECEIVED R-CHOP THERAPY, CYCLICAL
     Route: 065
  3. CARBOPLATIN [Suspect]
     Active Substance: CARBOPLATIN
     Indication: Diffuse large B-cell lymphoma
     Dosage: RECEIVED SECOND LINE OF CHEMOTHERAPY WITH R-ICE
     Route: 065
     Dates: start: 202102
  4. ETOPOSIDE [Suspect]
     Active Substance: ETOPOSIDE
     Indication: Diffuse large B-cell lymphoma
     Dosage: RECEIVED SECOND LINE OF CHEMOTHERAPY WITH R-ICE
     Route: 065
     Dates: start: 202102
  5. ETOPOSIDE [Suspect]
     Active Substance: ETOPOSIDE
     Indication: Central nervous system lymphoma
     Dosage: RECEIVED R-ESHAP THERAPY, SECOND LINE OF CHEMOTHERAPY
     Route: 065
     Dates: start: 202107, end: 20211217
  6. CISPLATIN [Suspect]
     Active Substance: CISPLATIN
     Indication: Diffuse large B-cell lymphoma
     Dosage: RECEIVED R-ESHAP THERAPY.
     Route: 065
     Dates: start: 202107, end: 20211217
  7. CISPLATIN [Suspect]
     Active Substance: CISPLATIN
     Indication: Central nervous system lymphoma
  8. METHOTREXATE [Suspect]
     Active Substance: METHOTREXATE
     Indication: Diffuse large B-cell lymphoma
     Dosage: RECEIVED SALVAGE THERAPY (ELAYED UNTIL FULL SYMPTOMATIC RECOVERY)
     Route: 037
     Dates: start: 202107
  9. RITUXIMAB [Suspect]
     Active Substance: RITUXIMAB
     Indication: Diffuse large B-cell lymphoma
     Dosage: RECEIVED R-CHOP THERAPY
     Route: 065
  10. RITUXIMAB [Suspect]
     Active Substance: RITUXIMAB
     Indication: Central nervous system lymphoma
     Dosage: RECEIVED SECOND LINE OF CHEMOTHERAPY WITH R-ICE, CYCLICAL
     Route: 065
     Dates: start: 202102
  11. RITUXIMAB [Suspect]
     Active Substance: RITUXIMAB
     Dosage: RECEIVED SECOND LINE OF CHEMOTHERAPY WITH R-ICE, CYCLICAL
     Route: 065
     Dates: start: 202107, end: 20211217
  12. VINCRISTINE [Suspect]
     Active Substance: VINCRISTINE
     Indication: Diffuse large B-cell lymphoma
     Dosage: CYCLICAL
     Route: 065
  13. CYCLOPHOSPHAMIDE [Suspect]
     Active Substance: CYCLOPHOSPHAMIDE
     Indication: Diffuse large B-cell lymphoma
     Dosage: CYCLICAL
     Route: 065
  14. IFOSFAMIDE [Suspect]
     Active Substance: IFOSFAMIDE
     Indication: Diffuse large B-cell lymphoma
     Dosage: RECEIVED SECOND LINE OF CHEMOTHERAPY WITH R-ICE
     Route: 065
     Dates: start: 202102
  15. CYTARABINE [Suspect]
     Active Substance: CYTARABINE
     Indication: Diffuse large B-cell lymphoma
     Dosage: RECEIVED R-ESHAP THERAPY
     Route: 065
     Dates: start: 202107, end: 20211217
  16. CYTARABINE [Suspect]
     Active Substance: CYTARABINE
     Indication: Central nervous system lymphoma
  17. METHYLPREDNISOLONE [Suspect]
     Active Substance: METHYLPREDNISOLONE
     Indication: Diffuse large B-cell lymphoma
     Dosage: RECEIVED R-ESHAP THERAPY.
     Route: 065
     Dates: start: 202107, end: 20211217
  18. METHYLPREDNISOLONE [Suspect]
     Active Substance: METHYLPREDNISOLONE
     Indication: Central nervous system lymphoma
  19. BENDAMUSTINE [Suspect]
     Active Substance: BENDAMUSTINE
     Indication: Diffuse large B-cell lymphoma
     Dosage: RECEIVED FOURTH-LINE CHEMOTHERAPY
     Route: 065
     Dates: start: 20220303
  20. BENDAMUSTINE [Suspect]
     Active Substance: BENDAMUSTINE
     Dosage: FOURTH-LINE CHEMOTHERAPY
     Route: 065
     Dates: start: 20220401
  21. BRENTUXIMAB [Suspect]
     Active Substance: BRENTUXIMAB
     Indication: Diffuse large B-cell lymphoma
     Dosage: RECEIVED FOURTH-LINE CHEMOTHERAPY
     Route: 065
     Dates: start: 20220303
  22. BRENTUXIMAB [Suspect]
     Active Substance: BRENTUXIMAB
     Dosage: FOURTH-LINE CHEMOTHERAPY
     Route: 065
     Dates: start: 20220401
  23. OXYGEN [Concomitant]
     Active Substance: OXYGEN
     Indication: Chylothorax
     Dosage: UNK
     Route: 045
     Dates: start: 202106

REACTIONS (5)
  - COVID-19 [Fatal]
  - COVID-19 [Not Recovered/Not Resolved]
  - Pneumonia [Unknown]
  - Therapy partial responder [Unknown]
  - Off label use [Unknown]

NARRATIVE: CASE EVENT DATE: 20210101
